FAERS Safety Report 22291827 (Version 1)
Quarter: 2023Q2

REPORT INFORMATION
  Report Type: Spontaneous
  Country: AU (occurrence: AU)
  Receive Date: 20230507
  Receipt Date: 20230507
  Transmission Date: 20230722
  Serious: Yes (Other)
  Sender: FDA-Public Use
  Company Number: AU-AstraZeneca-2023A099763

PATIENT
  Sex: Male

DRUGS (9)
  1. TRAMADOL HYDROCHLORIDE [Interacting]
     Active Substance: TRAMADOL HYDROCHLORIDE
     Indication: Product used for unknown indication
     Dosage: UNK
     Route: 065
  2. ESOMEPRAZOLE MAGNESIUM [Suspect]
     Active Substance: ESOMEPRAZOLE MAGNESIUM
     Indication: Product used for unknown indication
     Dosage: UNK
     Route: 048
  3. AMLODIPINE AND VALSARTAN [Suspect]
     Active Substance: AMLODIPINE\VALSARTAN
     Dosage: UNK
     Route: 065
  4. ESCITALOPRAM [Interacting]
     Active Substance: ESCITALOPRAM OXALATE
     Dosage: UNK
     Route: 065
  5. FLUOXETINE HYDROCHLORIDE [Interacting]
     Active Substance: FLUOXETINE HYDROCHLORIDE
     Dosage: UNK
     Route: 065
  6. MOCLOBEMIDE [Suspect]
     Active Substance: MOCLOBEMIDE
     Dosage: UNK
     Route: 065
  7. ACETAMINOPHEN [Suspect]
     Active Substance: ACETAMINOPHEN
     Indication: Product used for unknown indication
     Dosage: UNK
     Route: 065
  8. VENLAFAXINE [Interacting]
     Active Substance: VENLAFAXINE HYDROCHLORIDE
     Dosage: UNK
     Route: 065
  9. XELJANZ [Suspect]
     Active Substance: TOFACITINIB CITRATE
     Dosage: UNK
     Route: 065

REACTIONS (8)
  - Intentional overdose [Unknown]
  - Suicide attempt [Unknown]
  - Acute kidney injury [Unknown]
  - Metabolic acidosis [Unknown]
  - Serotonin syndrome [Unknown]
  - Drug interaction [Unknown]
  - Major depression [Unknown]
  - Physical deconditioning [Unknown]
